FAERS Safety Report 7407352-9 (Version None)
Quarter: 2011Q2

REPORT INFORMATION
  Report Type: 
  Country: None (occurrence: None)
  Receive Date: 20110411
  Receipt Date: 20110329
  Transmission Date: 20111010
  Serious: Yes (Hospitalization)
  Sender: FDA-Public Use
  Company Number: US-ELI_LILLY_AND_COMPANY-US201104000602

PATIENT
  Sex: Female

DRUGS (1)
  1. FORTEO [Suspect]
     Indication: OSTEOPOROSIS
     Dosage: UNK
     Dates: start: 20101001, end: 20110201

REACTIONS (5)
  - HAEMATEMESIS [None]
  - ILL-DEFINED DISORDER [None]
  - OESOPHAGEAL HAEMORRHAGE [None]
  - PNEUMONIA [None]
  - GASTRIC HAEMORRHAGE [None]
